FAERS Safety Report 16689908 (Version 1)
Quarter: 2019Q3

REPORT INFORMATION
  Report Type: Spontaneous
  Country: US (occurrence: US)
  Receive Date: 20190809
  Receipt Date: 20190809
  Transmission Date: 20191004
  Serious: Yes (Hospitalization, Other)
  Sender: FDA-Public Use
  Company Number: US-MYLANLABS-2019M1074253

PATIENT
  Age: 17 Year
  Sex: Female

DRUGS (7)
  1. DOXORUBICIN [Suspect]
     Active Substance: DOXORUBICIN
     Indication: HODGKIN^S DISEASE
     Dosage: ACCORDING TO CHILDREN^S ONCOLOGY GROUP STUDY AHOD0831.
     Route: 065
  2. VINCRISTINE [Suspect]
     Active Substance: VINCRISTINE
     Indication: HODGKIN^S DISEASE
     Dosage: ACCORDING TO CHILDREN^S ONCOLOGY GROUP STUDY AHOD0831.
     Route: 065
  3. FILGRASTIM [Concomitant]
     Active Substance: FILGRASTIM
     Indication: PROPHYLAXIS
     Dosage: UNK
     Route: 065
  4. BLEOMYCIN [Suspect]
     Active Substance: BLEOMYCIN SULFATE
     Indication: HODGKIN^S DISEASE
     Dosage: ACCORDING TO CHILDREN^S ONCOLOGY GROUP STUDY AHOD0831.
     Route: 065
  5. ETOPOSIDE. [Suspect]
     Active Substance: ETOPOSIDE
     Indication: HODGKIN^S DISEASE
     Dosage: ACCORDING TO CHILDREN^S ONCOLOGY GROUP STUDY AHOD0831.
     Route: 065
  6. PREDNISONE. [Suspect]
     Active Substance: PREDNISONE
     Indication: HODGKIN^S DISEASE
     Dosage: ACCORDING TO CHILDREN^S ONCOLOGY GROUP STUDY AHOD0831.
     Route: 065
  7. CYCLOPHOSPHAMIDE. [Suspect]
     Active Substance: CYCLOPHOSPHAMIDE
     Indication: HODGKIN^S DISEASE
     Dosage: ACCORDING TO CHILDREN^S ONCOLOGY GROUP STUDY AHOD0831.
     Route: 065

REACTIONS (8)
  - Neutropenia [Unknown]
  - Peripheral motor neuropathy [Unknown]
  - Syncope [Unknown]
  - Stomatitis [Unknown]
  - Peripheral sensory neuropathy [Unknown]
  - Capillary leak syndrome [Unknown]
  - Vulvovaginal inflammation [Unknown]
  - Mucosal inflammation [Unknown]
